FAERS Safety Report 6338496-0 (Version None)
Quarter: 2009Q3

REPORT INFORMATION
  Report Type: 
  Country: None (occurrence: None)
  Receive Date: 20090901
  Receipt Date: 20090817
  Transmission Date: 20100115
  Serious: Yes (Death, Hospitalization, Other)
  Sender: FDA-Public Use
  Company Number: 2009BM000010

PATIENT
  Age: 14 Year
  Sex: Male
  Weight: 25 kg

DRUGS (6)
  1. NAGLAZYME [Suspect]
     Indication: MUCOPOLYSACCHARIDOSIS VI
     Dosage: 4 VIALS;QW;IVDRIP ; 4 VIALS;QW;IVDRP
     Route: 041
     Dates: start: 20081030, end: 20090801
  2. NAGLAZYME [Suspect]
     Indication: MUCOPOLYSACCHARIDOSIS VI
     Dosage: 4 VIALS;QW;IVDRIP ; 4 VIALS;QW;IVDRP
     Route: 041
     Dates: start: 20090813, end: 20090813
  3. CAPTOPRIL [Concomitant]
  4. FUROSEMIDE [Concomitant]
  5. AETAMINOPHEN [Concomitant]
  6. DEXCHLORPHENIRAMINE MALEATE [Concomitant]

REACTIONS (9)
  - CARDIO-RESPIRATORY ARREST [None]
  - CARDIOGENIC SHOCK [None]
  - DRUG DOSE OMISSION [None]
  - GRAND MAL CONVULSION [None]
  - HAEMODYNAMIC INSTABILITY [None]
  - INTRACRANIAL PRESSURE INCREASED [None]
  - NOSOCOMIAL INFECTION [None]
  - SEPSIS [None]
  - SUBDURAL HAEMATOMA [None]
